FAERS Safety Report 10060741 (Version 7)
Quarter: 2015Q3

REPORT INFORMATION
  Report Type: Report from Study
  Country: CA (occurrence: CA)
  Receive Date: 20140404
  Receipt Date: 20150803
  Transmission Date: 20151125
  Serious: Yes (Death, Other)
  Sender: FDA-Public Use
  Company Number: CA-INCYTE CORPORATION-2012IN002357

PATIENT
  Age: 65 Year
  Sex: Male

DRUGS (16)
  1. LANTUS [Concomitant]
     Active Substance: INSULIN GLARGINE
     Route: 065
  2. NADOLOL. [Concomitant]
     Active Substance: NADOLOL
     Dosage: UNK UKN, UNK
  3. HUMALOG [Concomitant]
     Active Substance: INSULIN LISPRO
     Indication: PRODUCT USED FOR UNKNOWN INDICATION
     Dosage: UNK UKN, UNK
  4. JAKAFI [Suspect]
     Active Substance: RUXOLITINIB
     Dosage: 5 MG, BID
     Route: 048
     Dates: start: 20140312
  5. JAKAFI [Suspect]
     Active Substance: RUXOLITINIB
     Dosage: 10 MG, BID
     Route: 048
  6. JAKAFI [Suspect]
     Active Substance: RUXOLITINIB
     Dosage: 5 MG, BID
     Route: 048
     Dates: start: 20140618
  7. HUMALOG [Concomitant]
     Active Substance: INSULIN LISPRO
     Route: 065
  8. NADOLOL. [Concomitant]
     Active Substance: NADOLOL
     Dosage: UNK UKN, UNK
  9. JAKAFI [Suspect]
     Active Substance: RUXOLITINIB
     Dosage: 10 MG, BID
     Route: 048
     Dates: start: 2012
  10. NADOLOL. [Concomitant]
     Active Substance: NADOLOL
     Dosage: UNK UKN, UNK
     Route: 065
  11. NADOLOL. [Concomitant]
     Active Substance: NADOLOL
     Indication: PRODUCT USED FOR UNKNOWN INDICATION
     Dosage: UNK UKN, UNK
  12. LANTUS [Concomitant]
     Active Substance: INSULIN GLARGINE
     Dosage: UNK UKN, UNK
     Route: 065
  13. HUMALOG [Concomitant]
     Active Substance: INSULIN LISPRO
     Dosage: UNK UKN, UNK
     Route: 065
  14. LANTUS [Concomitant]
     Active Substance: INSULIN GLARGINE
     Indication: PRODUCT USED FOR UNKNOWN INDICATION
     Dosage: UNK UKN, UNK
  15. JAKAFI [Suspect]
     Active Substance: RUXOLITINIB
     Indication: MYELOFIBROSIS
     Dosage: 20 MG, BID
     Route: 048
     Dates: start: 20120912
  16. NADOLOL. [Concomitant]
     Active Substance: NADOLOL
     Dosage: UNK UKN, UNK
     Route: 065

REACTIONS (23)
  - Influenza [Unknown]
  - Haemoglobin decreased [Unknown]
  - Fall [Unknown]
  - Fatigue [Unknown]
  - Peripheral swelling [Unknown]
  - Neoplasm skin [Unknown]
  - Haemorrhage [Unknown]
  - Chest pain [Recovering/Resolving]
  - Blood creatinine increased [Unknown]
  - Renal disorder [Unknown]
  - Diarrhoea [Recovered/Resolved]
  - Hypoglycaemia [Unknown]
  - Hypoaesthesia [Unknown]
  - Blood potassium increased [Unknown]
  - Fluid retention [Unknown]
  - Contusion [Unknown]
  - Muscular weakness [Unknown]
  - Haemoglobin abnormal [Recovering/Resolving]
  - Splenomegaly [Not Recovered/Not Resolved]
  - Death [Fatal]
  - Cardiac disorder [Unknown]
  - Platelet count decreased [Unknown]
  - Weight increased [Unknown]

NARRATIVE: CASE EVENT DATE: 20121217
